FAERS Safety Report 23877990 (Version 1)
Quarter: 2024Q2

REPORT INFORMATION
  Report Type: Spontaneous
  Country: US (occurrence: US)
  Receive Date: 20240521
  Receipt Date: 20240521
  Transmission Date: 20240716
  Serious: No
  Sender: FDA-Public Use
  Company Number: US-009507513-2405USA004350

PATIENT
  Age: 52 Year
  Sex: Female

DRUGS (7)
  1. PREVYMIS [Suspect]
     Active Substance: LETERMOVIR
     Indication: Cytomegalovirus infection reactivation
     Dosage: LONG-TERM TREATMENT
     Route: 048
  2. TACROLIMUS [Concomitant]
     Active Substance: TACROLIMUS
     Indication: Immunosuppression
     Dosage: UNK
  3. GANCICLOVIR [Concomitant]
     Active Substance: GANCICLOVIR
     Indication: Cytomegalovirus infection reactivation
     Dosage: INDUCTION
  4. FOSCARNET [Concomitant]
     Active Substance: FOSCARNET
     Indication: Cytomegalovirus infection reactivation
     Dosage: INDUCTION
  5. MARIBAVIR [Concomitant]
     Active Substance: MARIBAVIR
     Indication: Cytomegalovirus infection reactivation
     Dosage: UNK
  6. CIDOFOVIR [Concomitant]
     Active Substance: CIDOFOVIR
     Indication: Cytomegalovirus infection reactivation
     Dosage: UNK
     Route: 042
  7. CYTOGAM [Concomitant]
     Active Substance: HUMAN CYTOMEGALOVIRUS IMMUNE GLOBULIN
     Indication: Cytomegalovirus infection reactivation
     Dosage: 100 MILLIGRAM/KILOGRAM, EVERY 6 WEEKS

REACTIONS (1)
  - Off label use [Unknown]
